FAERS Safety Report 17722295 (Version 8)
Quarter: 2021Q1

REPORT INFORMATION
  Report Type: Report from Study
  Country: US (occurrence: US)
  Receive Date: 20200429
  Receipt Date: 20210308
  Transmission Date: 20210419
  Serious: Yes (Hospitalization, Other)
  Sender: FDA-Public Use
  Company Number: US-ASTELLAS-2020US014794

PATIENT
  Sex: Male

DRUGS (1)
  1. ENZALUTAMIDE [Suspect]
     Active Substance: ENZALUTAMIDE
     Indication: PROSTATE CANCER
     Route: 048
     Dates: start: 20200313

REACTIONS (8)
  - Constipation [Unknown]
  - Glomerular filtration rate decreased [Unknown]
  - Haemorrhage urinary tract [Unknown]
  - Hot flush [Unknown]
  - Weight decreased [Unknown]
  - Muscle atrophy [Unknown]
  - Muscular weakness [Unknown]
  - Blood count abnormal [Unknown]
